FAERS Safety Report 5307362-1 (Version None)
Quarter: 2007Q2

REPORT INFORMATION
  Report Type: 
  Country: None (occurrence: None)
  Receive Date: 20070425
  Receipt Date: 20070416
  Transmission Date: 20071010
  Serious: No
  Sender: FDA-Public Use
  Company Number: GB-BAXTER-2007BH003044

PATIENT
  Age: 41 Year
  Sex: Female

DRUGS (14)
  1. EXTRANEAL [Suspect]
     Indication: PERITONEAL DIALYSIS
     Route: 033
     Dates: start: 20070209
  2. EXTRANEAL [Suspect]
     Route: 033
     Dates: start: 20070112
  3. DIANEAL [Concomitant]
     Indication: PERITONEAL DIALYSIS
     Route: 033
  4. NOVORAPID [Concomitant]
     Dates: start: 20070116
  5. IRBESARTAN [Concomitant]
     Dates: start: 20070116
  6. CITALOPRAM HYDROBROMIDE [Concomitant]
     Route: 048
     Dates: start: 20070116
  7. EPOETIN BETA [Concomitant]
     Route: 058
     Dates: start: 20061103
  8. ALFACALCIDOL [Concomitant]
     Route: 048
     Dates: start: 20060314
  9. OMEPRAZOLE [Concomitant]
     Route: 048
     Dates: start: 20060314
  10. SIMVASTATIN [Concomitant]
     Route: 048
     Dates: start: 20060314
  11. CLOPIDOGREL [Concomitant]
     Route: 048
     Dates: start: 20060314
  12. RENAGEL [Concomitant]
     Route: 048
     Dates: start: 20021101
  13. HUMAN INSULATARD [Concomitant]
     Route: 058
     Dates: start: 20021101
  14. HUMAN INSULATARD [Concomitant]
     Route: 048
     Dates: start: 20021101

REACTIONS (3)
  - OSTEOMYELITIS [None]
  - PAIN [None]
  - PERITONITIS [None]
